FAERS Safety Report 19969769 (Version 6)
Quarter: 2023Q1

REPORT INFORMATION
  Report Type: Report from Study
  Country: DE (occurrence: DE)
  Receive Date: 20211019
  Receipt Date: 20230310
  Transmission Date: 20230418
  Serious: Yes (Hospitalization, Other)
  Sender: FDA-Public Use
  Company Number: DE-002147023-NVSC2021DE146041

PATIENT
  Sex: Female
  Weight: 74 kg

DRUGS (8)
  1. ZOLEDRONIC ACID [Suspect]
     Active Substance: ZOLEDRONIC ACID
     Indication: Metastasis
     Dosage: UNK UNK, Q28D (Q4W (EVERY 4 WEEKS))
     Route: 042
     Dates: start: 20201106, end: 20210621
  2. ANASTROZOLE [Suspect]
     Active Substance: ANASTROZOLE
     Indication: Breast cancer metastatic
     Dosage: 1 MILLIGRAM, QD
     Route: 048
     Dates: start: 20200612
  3. KISQALI [Suspect]
     Active Substance: RIBOCICLIB
     Indication: Breast cancer metastatic
     Dosage: 600 MG (DAILY DOSE) (SCHEMA 21 D INTAKE, 7D PAUSE)
     Route: 048
     Dates: start: 20200615, end: 20211003
  4. KISQALI [Suspect]
     Active Substance: RIBOCICLIB
     Dosage: 600 MG QD (DAILY DOSE) (SCHEMA 21D INTAKE,7DPAUSE)
     Route: 048
     Dates: start: 20211010, end: 20211017
  5. KISQALI [Suspect]
     Active Substance: RIBOCICLIB
     Dosage: 600 MG QD (DAILY DOSE) (SCHEMA 21DINTAKE, 7DPAUSE)
     Route: 048
     Dates: start: 20211019, end: 20211022
  6. KISQALI [Suspect]
     Active Substance: RIBOCICLIB
     Dosage: 600 MG QD (DAILY DOSE) (SCHEMA 21DINTAKE, 7DPAUSE)
     Route: 048
     Dates: start: 20211024
  7. XGEVA [Suspect]
     Active Substance: DENOSUMAB
     Indication: Product used for unknown indication
     Dosage: UNK
     Route: 065
  8. ZOLEDRONIC ACID [Concomitant]
     Active Substance: ZOLEDRONIC ACID
     Indication: Product used for unknown indication
     Dosage: UNK
     Route: 065

REACTIONS (4)
  - Osteonecrosis [Recovering/Resolving]
  - Dehydration [Recovering/Resolving]
  - Renal impairment [Recovering/Resolving]
  - Anaemia [Not Recovered/Not Resolved]

NARRATIVE: CASE EVENT DATE: 20210611
